FAERS Safety Report 9696635 (Version 1)
Quarter: 2013Q4

REPORT INFORMATION
  Report Type: Spontaneous
  Country: IT (occurrence: IT)
  Receive Date: 20131119
  Receipt Date: 20131119
  Transmission Date: 20140711
  Serious: Yes (Other)
  Sender: FDA-Public Use
  Company Number: IT-MYLANLABS-2013S1025373

PATIENT
  Age: 92 Year
  Sex: Female

DRUGS (1)
  1. REPAGLINIDE [Suspect]
     Indication: PRODUCT USED FOR UNKNOWN INDICATION
     Route: 048
     Dates: start: 20130715, end: 20130717

REACTIONS (2)
  - Hypoglycaemia [Recovered/Resolved]
  - Medication error [Recovered/Resolved]
